FAERS Safety Report 5457979-9 (Version None)
Quarter: 2007Q3

REPORT INFORMATION
  Report Type: 
  Country: None (occurrence: None)
  Receive Date: 20070917
  Receipt Date: 20070908
  Transmission Date: 20080115
  Serious: Yes (Other)
  Sender: FDA-Public Use
  Company Number: CHPA2007US09564

PATIENT
  Age: 61 Year
  Sex: Female

DRUGS (11)
  1. FERROUS SULFATE TAB [Suspect]
     Indication: ANAEMIA
     Dosage: 160 MG, QD, ORAL; 160 MG, QD, ORAL
     Route: 048
     Dates: start: 20070101, end: 20070101
  2. FERROUS SULFATE TAB [Suspect]
     Indication: ANAEMIA
     Dosage: 160 MG, QD, ORAL; 160 MG, QD, ORAL
     Route: 048
     Dates: start: 20070101
  3. LIPITOR/NET/ (ATORVASTATIN CALCIUM) [Concomitant]
  4. LISINOPRIL [Concomitant]
  5. HYDROCHLOROTHIAZIDE [Concomitant]
  6. ESTRADIOL [Concomitant]
  7. LEVOXYL [Concomitant]
  8. NEXIUM [Concomitant]
  9. ALBUTEROL [Concomitant]
  10. PREDNISONE TAB [Concomitant]
  11. CARTIZAN [Concomitant]

REACTIONS (4)
  - ANOREXIA [None]
  - CHOLELITHIASIS [None]
  - FAECES DISCOLOURED [None]
  - WEIGHT DECREASED [None]
